FAERS Safety Report 6638193-8 (Version None)
Quarter: 2010Q1

REPORT INFORMATION
  Report Type: 
  Country: None (occurrence: None)
  Receive Date: 20100312
  Receipt Date: 20100301
  Transmission Date: 20100710
  Serious: Yes (Hospitalization)
  Sender: FDA-Public Use
  Company Number: 230620J10USA

PATIENT
  Age: 49 Year
  Sex: Female

DRUGS (1)
  1. REBIF [Suspect]
     Indication: MULTIPLE SCLEROSIS
     Dosage: 44 MCG, 3 IN 1 WEEKS, SUBCUTANEOUS
     Route: 058
     Dates: start: 20070702

REACTIONS (6)
  - DEEP VEIN THROMBOSIS [None]
  - DISEASE PROGRESSION [None]
  - MEMORY IMPAIRMENT [None]
  - MULTIPLE SCLEROSIS [None]
  - URINARY TRACT INFECTION [None]
  - VOMITING [None]
